FAERS Safety Report 23560574 (Version 1)
Quarter: 2024Q1

REPORT INFORMATION
  Report Type: Spontaneous
  Country: DE (occurrence: DE)
  Receive Date: 20240223
  Receipt Date: 20240223
  Transmission Date: 20240410
  Serious: Yes (Hospitalization, Other)
  Sender: FDA-Public Use
  Company Number: DE-EMBRYOTOX-202212695

PATIENT
  Age: 1 Day
  Sex: Male
  Weight: 3.335 kg

DRUGS (7)
  1. VENLAFAXINE [Suspect]
     Active Substance: VENLAFAXINE HYDROCHLORIDE
     Indication: Anxiety disorder
     Dosage: 112 MILLIGRAM, QD (SINCE 2005)
     Route: 064
     Dates: start: 20221014, end: 20230624
  2. VENLAFAXINE [Suspect]
     Active Substance: VENLAFAXINE HYDROCHLORIDE
     Dosage: 75 MILLIGRAM, QD (IN THE COURSE OF PREGNANCY)
     Route: 064
  3. AMOXICILLIN [Concomitant]
     Active Substance: AMOXICILLIN
     Indication: Cystitis
     Dosage: UNK
     Route: 064
     Dates: start: 20230515, end: 20230521
  4. BOOSTRIX [Concomitant]
     Active Substance: TETANUS TOXOID, REDUCED DIPHTHERIA TOXOID AND ACELLULAR PERTUSSIS VACCINE, ADSORBED ANTIGENS
     Indication: Immunisation
     Dosage: UNK
     Route: 064
     Dates: start: 20230505, end: 20230505
  5. BUDESONIDE [Concomitant]
     Active Substance: BUDESONIDE
     Indication: Sinusitis
     Dosage: BID (TWICE A DAY, UNKNOWN UNTIL WHEN)
     Route: 064
     Dates: start: 20230121, end: 20230124
  6. Emser [Concomitant]
     Indication: Sinusitis
     Dosage: PRN (FOR ONE WEEK, UNKNOWN UNTIL WHEN)
     Route: 064
  7. PROMETHAZINE [Concomitant]
     Active Substance: PROMETHAZINE HYDROCHLORIDE
     Indication: Panic disorder
     Dosage: 20 MILLIGRAM, QD (10X DURING PREGNANCY)
     Route: 064
     Dates: start: 20221215, end: 20230624

REACTIONS (3)
  - Poor feeding infant [Recovered/Resolved]
  - Respiratory disorder neonatal [Recovered/Resolved]
  - Foetal exposure during pregnancy [Unknown]

NARRATIVE: CASE EVENT DATE: 20230601
